FAERS Safety Report 6672893-9 (Version None)
Quarter: 2010Q2

REPORT INFORMATION
  Report Type: 
  Country: None (occurrence: None)
  Receive Date: 20100408
  Receipt Date: 20100329
  Transmission Date: 20101027
  Serious: Yes (Other)
  Sender: FDA-Public Use
  Company Number: PHHY2010AU20895

PATIENT
  Age: 33 Year
  Sex: Male

DRUGS (1)
  1. TERBINAFINE [Suspect]
     Indication: TINEA PEDIS
     Dosage: 250 MG DAILY
     Route: 048

REACTIONS (6)
  - BLOOD CREATININE INCREASED [None]
  - CIRCULATORY COLLAPSE [None]
  - LETHARGY [None]
  - PROTEIN URINE PRESENT [None]
  - RENAL IMPAIRMENT [None]
  - TUBULOINTERSTITIAL NEPHRITIS [None]
